FAERS Safety Report 12528999 (Version 1)
Quarter: 2016Q3

REPORT INFORMATION
  Report Type: Spontaneous
  Country: US (occurrence: US)
  Receive Date: 20160705
  Receipt Date: 20160705
  Transmission Date: 20161109
  Serious: No
  Sender: FDA-Public Use
  Company Number: US-PFIZER INC-2935922

PATIENT
  Age: 48 Year
  Sex: Female
  Weight: 66 kg

DRUGS (5)
  1. BUPIVACAINE HYDROCHLORIDE/EPINEPHRINE [Suspect]
     Active Substance: BUPIVACAINE HYDROCHLORIDE\EPINEPHRINE
     Indication: MUSCULOSKELETAL PAIN
     Dosage: 4 ML, ONCE
     Route: 042
     Dates: start: 20150617
  2. HCTZ [Concomitant]
     Active Substance: HYDROCHLOROTHIAZIDE
     Indication: HYPERTENSION
     Dosage: FREQ: 4 DAY; INTERVAL: 1.
     Route: 048
  3. LISINOPRIL. [Concomitant]
     Active Substance: LISINOPRIL
     Indication: HYPERTENSION
     Dosage: FREQ: 4 DAY; INTERVAL: 1.
     Route: 048
  4. CORTISONE [Suspect]
     Active Substance: CORTISONE\HYDROCORTISONE
     Indication: MUSCULOSKELETAL PAIN
     Dosage: UNK,ONCE
     Dates: start: 20150617
  5. LIDOCAINE HCL [Suspect]
     Active Substance: LIDOCAINE HYDROCHLORIDE
     Indication: MUSCULOSKELETAL PAIN
     Dosage: 4 ML, ONCE
     Route: 042
     Dates: start: 20150617

REACTIONS (1)
  - Urticaria [Recovered/Resolved]

NARRATIVE: CASE EVENT DATE: 20150601
